FAERS Safety Report 5825039-0 (Version None)
Quarter: 2008Q3

REPORT INFORMATION
  Report Type: 
  Country: None (occurrence: None)
  Receive Date: 20080724
  Receipt Date: 20080724
  Transmission Date: 20090109
  Serious: No
  Sender: FDA-Public Use
  Company Number: None

PATIENT
  Sex: Male
  Weight: 75.7507 kg

DRUGS (2)
  1. WELLBUTRIN [Suspect]
     Indication: DEPRESSION
     Dosage: 100 - 300 MG PO
     Route: 048
     Dates: start: 20071001, end: 20080401
  2. WELBUTRIN XR [Concomitant]

REACTIONS (3)
  - APATHY [None]
  - IRRITABILITY [None]
  - MOOD ALTERED [None]
